FAERS Safety Report 7830711-7 (Version None)
Quarter: 2011Q4

REPORT INFORMATION
  Report Type: 
  Country: None (occurrence: None)
  Receive Date: 20111021
  Receipt Date: 20111006
  Transmission Date: 20120403
  Serious: Yes (Death, Hospitalization)
  Sender: FDA-Public Use
  Company Number: TR-MUTUAL PHARMACEUTICAL COMPANY, INC.-CLHC20110045

PATIENT
  Age: 5 Year
  Sex: Male

DRUGS (1)
  1. COLCHICINE [Suspect]
     Route: 048

REACTIONS (7)
  - TOXICITY TO VARIOUS AGENTS [None]
  - ACCIDENTAL EXPOSURE [None]
  - PYREXIA [None]
  - MULTI-ORGAN FAILURE [None]
  - PANCYTOPENIA [None]
  - LETHARGY [None]
  - VOMITING [None]
